FAERS Safety Report 9762573 (Version 1)
Quarter: 2013Q4

REPORT INFORMATION
  Report Type: Spontaneous
  Country: US (occurrence: US)
  Receive Date: 20131216
  Receipt Date: 20131216
  Transmission Date: 20140711
  Serious: No
  Sender: FDA-Public Use
  Company Number: US-BIOGENIDEC-2013BI106784

PATIENT
  Age: 48 Year
  Sex: Male

DRUGS (5)
  1. TECFIDERA [Suspect]
     Indication: MULTIPLE SCLEROSIS
     Route: 048
     Dates: start: 20130926, end: 20131002
  2. TECFIDERA [Suspect]
     Indication: MULTIPLE SCLEROSIS
     Route: 048
     Dates: start: 20131003
  3. BUSPIRONE [Concomitant]
     Route: 048
  4. CELEXA [Concomitant]
     Route: 048
  5. ZOLPIDEM [Concomitant]
     Route: 048

REACTIONS (1)
  - Flushing [Not Recovered/Not Resolved]
